FAERS Safety Report 6879581-4 (Version None)
Quarter: 2010Q3

REPORT INFORMATION
  Report Type: 
  Country: None (occurrence: None)
  Receive Date: 20100728
  Receipt Date: 20100714
  Transmission Date: 20110219
  Serious: Yes (Other)
  Sender: FDA-Public Use
  Company Number: DE-ELI_LILLY_AND_COMPANY-DE201006007521

PATIENT
  Sex: Female

DRUGS (3)
  1. FORTEO [Suspect]
     Indication: OSTEOPOROSIS
     Route: 058
     Dates: start: 20100601
  2. SOTALOL HCL [Concomitant]
     Dosage: 80 MG, UNK
  3. ANTIHYPERTENSIVES [Concomitant]

REACTIONS (4)
  - BACK PAIN [None]
  - FRACTURE [None]
  - MUSCULOSKELETAL PAIN [None]
  - SPINAL DISORDER [None]
